FAERS Safety Report 16693261 (Version 3)
Quarter: 2019Q3

REPORT INFORMATION
  Report Type: Report from Study
  Country: US (occurrence: US)
  Receive Date: 20190812
  Receipt Date: 20190911
  Transmission Date: 20191004
  Serious: Yes (Hospitalization, Other)
  Sender: FDA-Public Use
  Company Number: US-GILEAD-2019-0421033

PATIENT
  Age: 52 Year
  Sex: Female
  Weight: 64.1 kg

DRUGS (30)
  1. AMBRISENTAN [Suspect]
     Active Substance: AMBRISENTAN
     Indication: PULMONARY HYPERTENSION
     Dosage: 10 MG, QD
     Route: 048
  2. ASPIRIN [ACETYLSALICYLIC ACID] [Concomitant]
     Active Substance: ASPIRIN
  3. LYRICA [Concomitant]
     Active Substance: PREGABALIN
  4. TIOTROPIUM [Concomitant]
     Active Substance: TIOTROPIUM
  5. ALBUTEROL [SALBUTAMOL] [Concomitant]
     Active Substance: ALBUTEROL
  6. IPRATROPIUM [Concomitant]
     Active Substance: IPRATROPIUM
  7. KEPPRA [Concomitant]
     Active Substance: LEVETIRACETAM
  8. SODIUM CHLORIDE. [Concomitant]
     Active Substance: SODIUM CHLORIDE
  9. AMBRISENTAN [Suspect]
     Active Substance: AMBRISENTAN
     Indication: SYSTEMIC LUPUS ERYTHEMATOSUS
  10. VIMPAT [Concomitant]
     Active Substance: LACOSAMIDE
  11. WARFARIN [Concomitant]
     Active Substance: WARFARIN
  12. ARTIFICIAL TEARS [HYPROMELLOSE] [Concomitant]
  13. UPTRAVI [Concomitant]
     Active Substance: SELEXIPAG
  14. REMODULIN [Concomitant]
     Active Substance: TREPROSTINIL
  15. ATORVASTATIN [Concomitant]
     Active Substance: ATORVASTATIN
  16. FOLIC ACID. [Concomitant]
     Active Substance: FOLIC ACID
  17. LIDOCAINE. [Concomitant]
     Active Substance: LIDOCAINE
  18. HEPARIN [HEPARIN SODIUM] [Concomitant]
  19. FLUTICASONE. [Concomitant]
     Active Substance: FLUTICASONE
  20. LASIX [Concomitant]
     Active Substance: FUROSEMIDE
  21. MIRALAX [Concomitant]
     Active Substance: POLYETHYLENE GLYCOL 3350
  22. SENNA [SENNA ALEXANDRINA] [Concomitant]
     Active Substance: SENNA LEAF
  23. TYLENOL [Concomitant]
     Active Substance: ACETAMINOPHEN
  24. XANAX [Concomitant]
     Active Substance: ALPRAZOLAM
  25. PROMETHAZINE [Concomitant]
     Active Substance: PROMETHAZINE HYDROCHLORIDE
  26. TRAZODONE [Concomitant]
     Active Substance: TRAZODONE HYDROCHLORIDE
  27. TADALAFIL. [Suspect]
     Active Substance: TADALAFIL
     Indication: PRODUCT USED FOR UNKNOWN INDICATION
     Route: 065
  28. MELATONIN [Concomitant]
     Active Substance: MELATONIN
  29. ONDANSETRON [Concomitant]
     Active Substance: ONDANSETRON
  30. OXYCODONE [Concomitant]
     Active Substance: OXYCODONE

REACTIONS (4)
  - Fluid overload [Unknown]
  - Pneumonia [Recovered/Resolved]
  - Right ventricular failure [Recovered/Resolved]
  - Acute respiratory failure [Recovered/Resolved]
